FAERS Safety Report 5504617-2 (Version None)
Quarter: 2007Q4

REPORT INFORMATION
  Report Type: 
  Country: None (occurrence: None)
  Receive Date: 20071101
  Receipt Date: 20071011
  Transmission Date: 20080405
  Serious: No
  Sender: FDA-Public Use
  Company Number: US-BOEHRINGER INGELHEIM PHARMACEUTICALS, INC.-2007-BP-22610BP

PATIENT
  Age: 74 Year
  Sex: Female

DRUGS (10)
  1. SPIRIVA [Suspect]
     Indication: ASTHMA
     Route: 055
     Dates: start: 20040101
  2. ALBUTEROL SULFATE NEBULIZER [Concomitant]
  3. PREDNISONE [Concomitant]
  4. ALBUTEROL [Concomitant]
  5. GLIPIZIDE [Concomitant]
  6. GLUCOPHAGE [Concomitant]
  7. MELLARIL [Concomitant]
  8. PROTONIX [Concomitant]
  9. BONIVA [Concomitant]
  10. ADVAIR DISKUS 100/50 [Concomitant]

REACTIONS (1)
  - DRUG EFFECT DECREASED [None]
